FAERS Safety Report 5596959-X (Version None)
Quarter: 2007Q4

REPORT INFORMATION
  Report Type: 
  Country: None (occurrence: None)
  Receive Date: 20071220
  Receipt Date: 20070131
  Transmission Date: 20080405
  Serious: Yes (Hospitalization)
  Sender: FDA-Public Use
  Company Number: 260490

PATIENT
  Age: 57 Year
  Sex: 0
  Weight: 106.6 kg

DRUGS (2)
  1. NOVOLOG MIX 70/30 [Suspect]
     Indication: INSULIN-REQUIRING TYPE II DIABETES MELLITUS
     Dosage: 50 IU, BID, SUBCUTANEOUS
     Route: 058
     Dates: start: 20060601
  2. MICARDIS [Concomitant]

REACTIONS (1)
  - BLOOD POTASSIUM DECREASED [None]
